FAERS Safety Report 7642947-9 (Version None)
Quarter: 2011Q3

REPORT INFORMATION
  Report Type: 
  Country: None (occurrence: None)
  Receive Date: 20110728
  Receipt Date: 20110218
  Transmission Date: 20111222
  Serious: No
  Sender: FDA-Public Use
  Company Number: US-BAYER-2011-017214

PATIENT
  Sex: Female

DRUGS (2)
  1. MIDOL MENSTRUAL COMPLETE CAPLETS [Suspect]
     Indication: PAIN
  2. MIDOL LIQUID GELS [Suspect]
     Indication: DYSMENORRHOEA

REACTIONS (2)
  - DYSMENORRHOEA [None]
  - PAIN [None]
